FAERS Safety Report 10320631 (Version 2)
Quarter: 2015Q1

REPORT INFORMATION
  Report Type: Other
  Country: None (occurrence: US)
  Receive Date: 20140719
  Receipt Date: 20150212
  Transmission Date: 20150720
  Serious: Yes (Death, Hospitalization, Other)
  Sender: FDA-Public Use
  Company Number: US-GSKPPD-2014GSK027203

PATIENT
  Age: 49 Year
  Sex: Female

DRUGS (4)
  1. AVANDIA [Suspect]
     Active Substance: ROSIGLITAZONE MALEATE
     Indication: DIABETES MELLITUS
     Dosage: AVANDIA WAS NOT LISTED AMONG THE PATIENTS RECORDS REVIEWED.
     Route: 048
  2. LOPRESSOR [Concomitant]
     Active Substance: METOPROLOL TARTRATE
  3. PLAVIX [Concomitant]
     Active Substance: CLOPIDOGREL BISULFATE
  4. NORVASC [Concomitant]
     Active Substance: AMLODIPINE BESYLATE

REACTIONS (2)
  - Cardiac failure congestive [Recovered/Resolved]
  - Myocardial infarction [Fatal]

NARRATIVE: CASE EVENT DATE: 20100420
